FAERS Safety Report 8479547-7 (Version None)
Quarter: 2012Q2

REPORT INFORMATION
  Report Type: 
  Country: None (occurrence: None)
  Receive Date: 20120629
  Receipt Date: 20120623
  Transmission Date: 20120825
  Serious: Yes (Other)
  Sender: FDA-Public Use
  Company Number: CO-PFIZER INC-2012153570

PATIENT
  Age: 75 Year
  Sex: Male

DRUGS (3)
  1. INSULIN [Concomitant]
     Indication: DIABETES MELLITUS
     Dosage: UNK
  2. XALATAN [Suspect]
     Indication: GLAUCOMA
     Dosage: UNK
     Dates: start: 20120401, end: 20120513
  3. METFORMIN [Concomitant]
     Indication: DIABETES MELLITUS
     Dosage: ONE AT BREAKFAST AND ANOTHER AT LUNG

REACTIONS (1)
  - OPTIC NERVE DISORDER [None]
